FAERS Safety Report 6392953-X (Version None)
Quarter: 2009Q4

REPORT INFORMATION
  Report Type: 
  Country: None (occurrence: None)
  Receive Date: 20091008
  Receipt Date: 20071012
  Transmission Date: 20100525
  Serious: Yes (Other)
  Sender: FDA-Public Use
  Company Number: US-ASTRAZENECA-2007UW19002

PATIENT
  Age: 13506 Day
  Sex: Female
  Weight: 97.5 kg

DRUGS (13)
  1. SEROQUEL [Suspect]
     Indication: PSYCHOTIC DISORDER
     Dosage: 25 MG-500 MG AT NIGHT
     Route: 048
     Dates: start: 20000419
  2. SEROQUEL [Suspect]
     Route: 048
  3. ZYPREXA [Concomitant]
  4. LIPITOR [Concomitant]
     Route: 048
     Dates: start: 20050909
  5. PROPRANOLOL [Concomitant]
     Route: 048
     Dates: start: 20050909
  6. ISOSORBIDE MONONITRATE [Concomitant]
     Dates: start: 20070822
  7. BENTYL [Concomitant]
     Indication: IRRITABLE BOWEL SYNDROME
     Route: 048
     Dates: start: 20070822
  8. TRAZODONE [Concomitant]
     Dosage: 100 MG-150 MG WITH FOOD AT NIGHT
     Dates: start: 19991028
  9. EFFEXOR [Concomitant]
     Dates: start: 19991028
  10. KLONOPIN [Concomitant]
     Indication: INSOMNIA
     Dosage: 1 MG-1.5 MG AT NIGHT AS REQUIRED
     Route: 048
     Dates: start: 19991028
  11. NEURONTIN [Concomitant]
     Indication: AFFECTIVE DISORDER
     Dates: start: 20000921
  12. HALDOL [Concomitant]
     Route: 048
     Dates: start: 20000916
  13. DEPAKOTE [Concomitant]
     Dosage: 500 MG AT AM AND 1000 MG AT NIGHT
     Dates: start: 20000916

REACTIONS (2)
  - DIABETES MELLITUS [None]
  - PERIPHERAL SENSORY NEUROPATHY [None]
